APPROVED DRUG PRODUCT: SELZENTRY
Active Ingredient: MARAVIROC
Strength: 20MG/ML
Dosage Form/Route: SOLUTION;ORAL
Application: N208984 | Product #001
Applicant: VIIV HEALTHCARE CO
Approved: Nov 4, 2016 | RLD: Yes | RS: Yes | Type: RX